FAERS Safety Report 7491655-6 (Version None)
Quarter: 2011Q2

REPORT INFORMATION
  Report Type: 
  Country: None (occurrence: None)
  Receive Date: 20110518
  Receipt Date: 20110518
  Transmission Date: 20111010
  Serious: Yes (Other)
  Sender: FDA-Public Use
  Company Number: None

PATIENT
  Sex: Male
  Weight: 98.4 kg

DRUGS (1)
  1. GABAPENTIN [Suspect]
     Indication: NEURALGIA
     Dosage: 900MG TID PO
     Route: 048
     Dates: start: 20110301

REACTIONS (1)
  - MEMORY IMPAIRMENT [None]
